FAERS Safety Report 6713341-X (Version None)
Quarter: 2010Q2

REPORT INFORMATION
  Report Type: 
  Country: None (occurrence: None)
  Receive Date: 20100503
  Receipt Date: 20100419
  Transmission Date: 20101027
  Serious: Yes (Other)
  Sender: FDA-Public Use
  Company Number: 2010AP000813

PATIENT
  Sex: Male

DRUGS (3)
  1. RAMIPRIL [Suspect]
     Indication: DRUG USE FOR UNKNOWN INDICATION
  2. AMLODIPINE [Concomitant]
  3. TAMSULOSIN HCL [Concomitant]

REACTIONS (12)
  - AURICULAR SWELLING [None]
  - EYE SWELLING [None]
  - JOINT SWELLING [None]
  - LIP SWELLING [None]
  - OEDEMA MOUTH [None]
  - OEDEMA PERIPHERAL [None]
  - PENILE OEDEMA [None]
  - PHARYNGEAL OEDEMA [None]
  - SWELLING [None]
  - SWELLING FACE [None]
  - SWOLLEN TONGUE [None]
  - VENIPUNCTURE SITE SWELLING [None]
